FAERS Safety Report 6617974-0 (Version None)
Quarter: 2010Q1

REPORT INFORMATION
  Report Type: 
  Country: None (occurrence: None)
  Receive Date: 20100308
  Receipt Date: 20100304
  Transmission Date: 20100710
  Serious: Yes (Life-Threatening)
  Sender: FDA-Public Use
  Company Number: FR-ASTRAZENECA-2010SE09376

PATIENT
  Age: 64 Year
  Sex: Female
  Weight: 74 kg

DRUGS (11)
  1. FOSCAVIR [Suspect]
     Indication: CYTOMEGALOVIRUS INFECTION
     Route: 042
     Dates: start: 20100201
  2. NEORAL [Concomitant]
  3. CELLCEPT [Concomitant]
  4. KARDEGIC [Concomitant]
  5. INIPOMP [Concomitant]
  6. TAHOR [Concomitant]
  7. CALCIUM [Concomitant]
  8. DIFFU-K [Concomitant]
  9. HEPARIN [Concomitant]
  10. CANCIDAS [Concomitant]
  11. CEFOXITIN [Concomitant]

REACTIONS (2)
  - GRAND MAL CONVULSION [None]
  - STATUS EPILEPTICUS [None]
